FAERS Safety Report 24666459 (Version 1)
Quarter: 2024Q4

REPORT INFORMATION
  Report Type: Spontaneous
  Country: US (occurrence: US)
  Receive Date: 20241126
  Receipt Date: 20241126
  Transmission Date: 20250114
  Serious: No
  Sender: SANOFI AVENTIS
  Company Number: US-SA-2024SA337624

PATIENT
  Sex: Female
  Weight: 100.91 kg

DRUGS (29)
  1. DUPIXENT [Suspect]
     Active Substance: DUPILUMAB
     Indication: Asthma
     Dosage: 300 MG, QOW
     Route: 058
  2. GLIPIZIDE [Concomitant]
     Active Substance: GLIPIZIDE
     Dosage: 10MG, 24H
  3. ACETAMINOPHEN [Concomitant]
     Active Substance: ACETAMINOPHEN
  4. STOOL SOFTENER (DOCUSATE) [Concomitant]
     Active Substance: DOCUSATE
  5. ACETAMINOPHEN\OXYCODONE HYDROCHLORIDE [Concomitant]
     Active Substance: ACETAMINOPHEN\OXYCODONE HYDROCHLORIDE
  6. EPINEPHRINE [Concomitant]
     Active Substance: EPINEPHRINE
  7. B12 ACTIVE [Concomitant]
  8. ASPIRIN [Concomitant]
     Active Substance: ASPIRIN
  9. ICY HOT [Concomitant]
     Active Substance: MENTHOL\METHYL SALICYLATE
  10. DIETARY SUPPLEMENT\HERBALS\MILK THISTLE [Concomitant]
     Active Substance: MILK THISTLE
  11. CINNAMON [Concomitant]
     Active Substance: CINNAMON
  12. MAGNESIUM GLYCINATE [Concomitant]
     Active Substance: MAGNESIUM GLYCINATE
  13. VITAMIN D [Concomitant]
     Active Substance: VITAMIN D NOS
  14. FISH OIL [Concomitant]
     Active Substance: FISH OIL
  15. UBIQUINOL [Concomitant]
     Active Substance: UBIQUINOL
  16. MINERALS\VITAMINS [Concomitant]
     Active Substance: MINERALS\VITAMINS
  17. IPRATROPIUM BROMIDE [Concomitant]
     Active Substance: IPRATROPIUM BROMIDE
  18. INCRUSE ELLIPTA [Concomitant]
     Active Substance: UMECLIDINIUM BROMIDE
  19. MUCUS RELIEF [Concomitant]
     Active Substance: GUAIFENESIN
  20. ALBUTEROL SULFATE [Concomitant]
     Active Substance: ALBUTEROL SULFATE
  21. SIMVASTATIN [Concomitant]
     Active Substance: SIMVASTATIN
  22. FLUTICASONE FUROATE\SALMETEROL XINAFOATE [Concomitant]
     Active Substance: FLUTICASONE FUROATE\SALMETEROL XINAFOATE
  23. FLUTICASONE PROPIONATE [Concomitant]
     Active Substance: FLUTICASONE PROPIONATE
  24. FAMOTIDINE [Concomitant]
     Active Substance: FAMOTIDINE
  25. GABAPENTIN [Concomitant]
     Active Substance: GABAPENTIN
  26. LISINOPRIL [Concomitant]
     Active Substance: LISINOPRIL
  27. METFORMIN [Concomitant]
     Active Substance: METFORMIN HYDROCHLORIDE
  28. MONTELUKAST SODIUM [Concomitant]
     Active Substance: MONTELUKAST SODIUM
  29. DEXTROSE [Concomitant]
     Active Substance: DEXTROSE MONOHYDRATE

REACTIONS (2)
  - Hypersensitivity [Unknown]
  - Drug ineffective [Unknown]
